FAERS Safety Report 5679032-1 (Version None)
Quarter: 2008Q1

REPORT INFORMATION
  Report Type: 
  Country: None (occurrence: None)
  Receive Date: 20080325
  Receipt Date: 20080317
  Transmission Date: 20080703
  Serious: Yes (Other)
  Sender: FDA-Public Use
  Company Number: JP-BRISTOL-MYERS SQUIBB COMPANY-14113971

PATIENT
  Age: 75 Year
  Sex: Male

DRUGS (5)
  1. TAXOL [Suspect]
     Indication: LUNG SQUAMOUS CELL CARCINOMA STAGE UNSPECIFIED
     Route: 041
     Dates: start: 20080212, end: 20080212
  2. KYTRIL [Concomitant]
     Route: 042
     Dates: start: 20080212, end: 20080212
  3. DECADRON [Concomitant]
     Route: 042
     Dates: start: 20080212, end: 20080212
  4. GAMOFA [Concomitant]
     Route: 042
     Dates: start: 20080212, end: 20080212
  5. POLARAMINE [Concomitant]
     Route: 042
     Dates: start: 20080212, end: 20080212

REACTIONS (6)
  - ALTERED STATE OF CONSCIOUSNESS [None]
  - BLOOD PRESSURE DIASTOLIC DECREASED [None]
  - DYSPNOEA [None]
  - HYPOXIA [None]
  - INFUSION RELATED REACTION [None]
  - PROTHROMBIN LEVEL ABNORMAL [None]
